FAERS Safety Report 6889191-0 (Version None)
Quarter: 2010Q3

REPORT INFORMATION
  Report Type: 
  Country: None (occurrence: None)
  Receive Date: 20100730
  Receipt Date: 20080114
  Transmission Date: 20110219
  Serious: No
  Sender: FDA-Public Use
  Company Number: US-PFIZER INC-2007102021

PATIENT
  Age: 72 Year
  Sex: Male
  Weight: 95.71 kg

DRUGS (4)
  1. LIPITOR [Suspect]
     Dates: start: 20071001
  2. LOSARTAN POSTASSIUM [Concomitant]
  3. LASIX [Concomitant]
  4. TOPROL-XL [Concomitant]

REACTIONS (1)
  - MUSCULOSKELETAL DISCOMFORT [None]
